FAERS Safety Report 12593791 (Version 1)
Quarter: 2016Q3

REPORT INFORMATION
  Report Type: Spontaneous
  Country: GB (occurrence: GB)
  Receive Date: 20160726
  Receipt Date: 20160726
  Transmission Date: 20161109
  Serious: Yes (Disabling, Other)
  Sender: FDA-Public Use
  Company Number: GB-PFIZER INC-2016353841

PATIENT
  Age: 57 Year
  Sex: Male
  Weight: 80.73 kg

DRUGS (1)
  1. VENLAFAXINE HCL [Suspect]
     Active Substance: VENLAFAXINE HYDROCHLORIDE
     Indication: DEPRESSION
     Dosage: 37.5 MG, 2X/DAY
     Route: 048
     Dates: start: 201502

REACTIONS (15)
  - Dry mouth [Not Recovered/Not Resolved]
  - Loss of libido [Not Recovered/Not Resolved]
  - Male orgasmic disorder [Not Recovered/Not Resolved]
  - Orgasmic sensation decreased [Unknown]
  - Visual impairment [Unknown]
  - Dysgeusia [Unknown]
  - Condition aggravated [Unknown]
  - Breath sounds abnormal [Unknown]
  - Headache [Not Recovered/Not Resolved]
  - Drug withdrawal headache [Not Recovered/Not Resolved]
  - Snoring [Unknown]
  - Balance disorder [Not Recovered/Not Resolved]
  - Sleep apnoea syndrome [Unknown]
  - Nightmare [Unknown]
  - Throat tightness [Unknown]

NARRATIVE: CASE EVENT DATE: 201502
